FAERS Safety Report 6897788-7 (Version None)
Quarter: 2010Q3

REPORT INFORMATION
  Report Type: 
  Country: None (occurrence: None)
  Receive Date: 20100802
  Receipt Date: 20070919
  Transmission Date: 20110219
  Serious: No
  Sender: FDA-Public Use
  Company Number: US-PFIZER INC-2007058920

PATIENT
  Sex: Male
  Weight: 61.4 kg

DRUGS (3)
  1. LYRICA [Suspect]
     Indication: NEURALGIA
     Dates: start: 20070101
  2. HYDROCODONE BITARTRATE [Concomitant]
  3. SOMA [Concomitant]

REACTIONS (3)
  - DRUG SCREEN FALSE POSITIVE [None]
  - EUPHORIC MOOD [None]
  - MENTAL STATUS CHANGES [None]
